FAERS Safety Report 6647692-4 (Version None)
Quarter: 2010Q1

REPORT INFORMATION
  Report Type: 
  Country: None (occurrence: None)
  Receive Date: 20100323
  Receipt Date: 20100323
  Transmission Date: 20100710
  Serious: No
  Sender: FDA-Public Use
  Company Number: None

PATIENT
  Sex: Male
  Weight: 83.0083 kg

DRUGS (1)
  1. PAROXETINE HCL [Suspect]
     Indication: DEPRESSION
     Dosage: 30MG ONCE DAILY ORAL
     Route: 048
     Dates: start: 20091201, end: 20100301

REACTIONS (8)
  - AGGRESSION [None]
  - ERECTION INCREASED [None]
  - HEART RATE INCREASED [None]
  - LIP BLISTER [None]
  - LIP SWELLING [None]
  - PAINFUL ERECTION [None]
  - PRURITUS [None]
  - SWELLING FACE [None]
